FAERS Safety Report 4729395-6 (Version None)
Quarter: 2005Q3

REPORT INFORMATION
  Report Type: 
  Country: None (occurrence: None)
  Receive Date: 20050728
  Receipt Date: 20050719
  Transmission Date: 20060218
  Serious: Yes (Other)
  Sender: FDA-Public Use
  Company Number: 2005103728

PATIENT
  Age: 68 Year
  Sex: Female

DRUGS (20)
  1. LIPITOR [Suspect]
     Indication: BLOOD CHOLESTEROL INCREASED
     Dosage: 10 MG (10 MG, 1 IN 1 D)
  2. ACCUPRIL [Suspect]
     Indication: HYPERTENSION
     Dosage: 40 MG
  3. LUNESIA (ESZOPICLONE) [Concomitant]
  4. VALIUM [Concomitant]
  5. ALBUTEROL [Concomitant]
  6. AMBIEN [Concomitant]
  7. BUTALBITAL [Concomitant]
  8. DIAZEPAM [Concomitant]
  9. FLONASE [Concomitant]
  10. HYDROCODONE [Concomitant]
  11. HYDROXYZINE [Concomitant]
  12. IMIPRAMINE [Concomitant]
  13. PATANOL [Concomitant]
  14. PREMARIN [Concomitant]
  15. PRILOSEC [Concomitant]
  16. ALL OTHER THERAPEUTIC PRODUCTS [Concomitant]
  17. PROPOXYPHENE (DEXTROPOXYPHENE) [Concomitant]
  18. PENTOXIFYLLINE [Concomitant]
  19. TRIAMTERENE [Concomitant]
  20. ZYRTEC [Concomitant]

REACTIONS (6)
  - ANXIETY [None]
  - BLOOD CHOLESTEROL INCREASED [None]
  - DRUG INEFFECTIVE [None]
  - MULTIPLE MYELOMA [None]
  - SLEEP DISORDER [None]
  - WEIGHT FLUCTUATION [None]
